FAERS Safety Report 12415835 (Version 3)
Quarter: 2018Q2

REPORT INFORMATION
  Report Type: Spontaneous
  Country: US (occurrence: US)
  Receive Date: 20160530
  Receipt Date: 20180416
  Transmission Date: 20180711
  Serious: Yes (Hospitalization, Other)
  Sender: FDA-Public Use
  Company Number: US-WEST-WARD PHARMACEUTICALS CORP.-US-H14001-16-00837

PATIENT
  Age: 59 Year
  Sex: Male

DRUGS (1)
  1. ISONIAZID. [Suspect]
     Active Substance: ISONIAZID
     Indication: LATENT TUBERCULOSIS
     Route: 065

REACTIONS (6)
  - Abdominal pain [Unknown]
  - Dizziness [Unknown]
  - Toxicity to various agents [Unknown]
  - Syncope [Unknown]
  - Liver function test increased [Unknown]
  - Constipation [Unknown]
